FAERS Safety Report 5478981-7 (Version None)
Quarter: 2007Q4

REPORT INFORMATION
  Report Type: 
  Country: None (occurrence: None)
  Receive Date: 20071006
  Receipt Date: 20070926
  Transmission Date: 20080405
  Serious: Yes (Other)
  Sender: FDA-Public Use
  Company Number: US-PFIZER INC-2007080237

PATIENT
  Sex: Female
  Weight: 66.7 kg

DRUGS (4)
  1. XALATAN [Suspect]
     Indication: GLAUCOMA
     Route: 031
     Dates: start: 20070301, end: 20070901
  2. CYCLOSPORINE [Concomitant]
     Route: 047
  3. ALL OTHER NON-THERAPEUTIC PRODUCTS [Concomitant]
  4. ALL OTHER THERAPEUTIC PRODUCTS [Concomitant]

REACTIONS (3)
  - GROWTH OF EYELASHES [None]
  - INTRAOCULAR PRESSURE INCREASED [None]
  - SKIN DISCOLOURATION [None]
